FAERS Safety Report 7747325-X (Version None)
Quarter: 2011Q3

REPORT INFORMATION
  Report Type: 
  Country: None (occurrence: None)
  Receive Date: 20110913
  Receipt Date: 20110906
  Transmission Date: 20111222
  Serious: Yes (Life-Threatening)
  Sender: FDA-Public Use
  Company Number: IT-BRISTOL-MYERS SQUIBB COMPANY-16035925

PATIENT
  Age: 72 Year
  Sex: Female

DRUGS (3)
  1. RAMIPRIL [Concomitant]
  2. COUMADIN [Suspect]
     Indication: ISCHAEMIA
     Dosage: INTERRUPTED IN AUG-2011
     Route: 048
     Dates: start: 20100101
  3. LEVOTHYROXINE SODIUM [Concomitant]

REACTIONS (4)
  - VOMITING [None]
  - HEADACHE [None]
  - HYPERTENSION [None]
  - VERTIGO [None]
